FAERS Safety Report 19402052 (Version 5)
Quarter: 2021Q4

REPORT INFORMATION
  Report Type: Spontaneous
  Country: US (occurrence: US)
  Receive Date: 20210611
  Receipt Date: 20211002
  Transmission Date: 20220303
  Serious: Yes (Hospitalization)
  Sender: FDA-Public Use
  Company Number: US-GLOBAL BLOOD THERAPEUTICS INC-US-GBT-21-01961

PATIENT
  Age: 54 Year
  Sex: Female

DRUGS (3)
  1. OXBRYTA [Suspect]
     Active Substance: VOXELOTOR
     Indication: Sickle cell disease
     Route: 048
  2. OXBRYTA [Suspect]
     Active Substance: VOXELOTOR
     Indication: Anaemia
     Route: 048
  3. HUMAN RED BLOOD CELL [Concomitant]
     Active Substance: HUMAN RED BLOOD CELL
     Indication: Sickle cell disease
     Dosage: NOT PROVIDED
     Dates: start: 20210825, end: 20210825

REACTIONS (15)
  - Sickle cell anaemia with crisis [Not Recovered/Not Resolved]
  - Haemoglobin abnormal [Recovered/Resolved]
  - Haemoglobin abnormal [Recovered/Resolved]
  - Coronavirus infection [Recovered/Resolved]
  - Sickle cell anaemia with crisis [Recovered/Resolved]
  - Food poisoning [Unknown]
  - Sickle cell anaemia with crisis [Unknown]
  - Panic attack [Unknown]
  - Insomnia [Unknown]
  - Night sweats [Unknown]
  - Full blood count abnormal [Unknown]
  - Nausea [Unknown]
  - Feeling abnormal [Unknown]
  - Product dose omission issue [Unknown]
  - Off label use [Unknown]

NARRATIVE: CASE EVENT DATE: 20210101
